FAERS Safety Report 14713009 (Version 1)
Quarter: 2018Q1

REPORT INFORMATION
  Report Type: Spontaneous
  Country: US (occurrence: US)
  Receive Date: 20180330
  Receipt Date: 20180330
  Transmission Date: 20180509
  Serious: Yes (Death)
  Sender: FDA-Public Use
  Company Number: None

PATIENT
  Age: 71 Year
  Sex: Female

DRUGS (1)
  1. REVLIMID [Suspect]
     Active Substance: LENALIDOMIDE
     Indication: PLASMA CELL MYELOMA
     Route: 048
     Dates: start: 20170523, end: 20170627

REACTIONS (6)
  - Multiple organ dysfunction syndrome [None]
  - Deep vein thrombosis [None]
  - Sepsis [None]
  - Drug intolerance [None]
  - Acute myocardial infarction [None]
  - Mental status changes [None]

NARRATIVE: CASE EVENT DATE: 20170629
